FAERS Safety Report 24941842 (Version 1)
Quarter: 2025Q1

REPORT INFORMATION
  Report Type: Spontaneous
  Country: US (occurrence: None)
  Receive Date: 20250206
  Receipt Date: 20250206
  Transmission Date: 20250409
  Serious: No
  Sender: FDA-CTU
  Company Number: None

PATIENT
  Age: 66 Year
  Sex: Male
  Weight: 65.25 kg

DRUGS (2)
  1. CANDESARTAN [Suspect]
     Active Substance: CANDESARTAN
     Indication: Blood pressure abnormal
     Route: 048
     Dates: start: 20241226
  2. FAMCICLOVIR [Suspect]
     Active Substance: FAMCICLOVIR

REACTIONS (5)
  - Product commingling [None]
  - Wrong product administered [None]
  - Dizziness [None]
  - Dizziness [None]
  - Therapy interrupted [None]

NARRATIVE: CASE EVENT DATE: 20250121
